FAERS Safety Report 16169873 (Version 1)
Quarter: 2019Q2

REPORT INFORMATION
  Report Type: Spontaneous
  Country: US (occurrence: US)
  Receive Date: 20190408
  Receipt Date: 20190408
  Transmission Date: 20190711
  Serious: Yes (Other)
  Sender: FDA-Public Use
  Company Number: US-TARO-2019TAR00255

PATIENT
  Sex: Female

DRUGS (6)
  1. UNSPECIFIED MEDICATIONS [Suspect]
     Active Substance: UNSPECIFIED INGREDIENT
     Indication: PULMONARY TOXICITY
  2. UNSPECIFIED MEDICATIONS [Suspect]
     Active Substance: UNSPECIFIED INGREDIENT
     Indication: GLAUCOMA
  3. UNSPECIFIED MEDICATIONS [Suspect]
     Active Substance: UNSPECIFIED INGREDIENT
     Indication: PULMONARY MASS
  4. AMIODARONE HCL TABLET 200 MG [Suspect]
     Active Substance: AMIODARONE HYDROCHLORIDE
     Indication: ATRIAL FIBRILLATION
     Dosage: UNK
     Route: 048
     Dates: start: 201406
  5. UNSPECIFIED MEDICATIONS [Suspect]
     Active Substance: UNSPECIFIED INGREDIENT
     Indication: CARDIAC FAILURE CONGESTIVE
  6. UNSPECIFIED MEDICATIONS [Suspect]
     Active Substance: UNSPECIFIED INGREDIENT
     Indication: PNEUMONIA

REACTIONS (11)
  - Decreased appetite [Unknown]
  - Off label use [Unknown]
  - Glaucoma [Unknown]
  - Chronic obstructive pulmonary disease [Unknown]
  - Pulmonary toxicity [Unknown]
  - Pneumonia [Unknown]
  - Cardiac failure congestive [Unknown]
  - Gait disturbance [Unknown]
  - Pulmonary mass [Unknown]
  - Unevaluable event [Unknown]
  - Confusional state [Unknown]

NARRATIVE: CASE EVENT DATE: 201406
